FAERS Safety Report 17335142 (Version 2)
Quarter: 2020Q2

REPORT INFORMATION
  Report Type: Spontaneous
  Country: US (occurrence: US)
  Receive Date: 20200128
  Receipt Date: 20200406
  Transmission Date: 20200713
  Serious: Yes (Other)
  Sender: FDA-Public Use
  Company Number: US-NOVOPROD-708393

PATIENT
  Age: 57 Year
  Sex: Male
  Weight: 97.96 kg

DRUGS (2)
  1. OZEMPIC [Suspect]
     Active Substance: SEMAGLUTIDE
     Indication: TYPE 2 DIABETES MELLITUS
     Dosage: 0.25 MG, QW
     Route: 058
     Dates: start: 20191008, end: 20191104
  2. OZEMPIC [Suspect]
     Active Substance: SEMAGLUTIDE
     Dosage: 0.5 MG, QW
     Route: 058
     Dates: start: 20191105, end: 20200113

REACTIONS (6)
  - Migraine with aura [Unknown]
  - Optic neuropathy [Recovering/Resolving]
  - Temporal arteritis [Recovering/Resolving]
  - Blood glucose increased [Recovered/Resolved]
  - Glycosylated haemoglobin increased [Unknown]
  - Pancreatic failure [Unknown]

NARRATIVE: CASE EVENT DATE: 201911
